FAERS Safety Report 6971962-3 (Version None)
Quarter: 2010Q3

REPORT INFORMATION
  Report Type: 
  Country: None (occurrence: None)
  Receive Date: 20100908
  Receipt Date: 20100908
  Transmission Date: 20110219
  Serious: No
  Sender: FDA-Public Use
  Company Number: None

PATIENT
  Sex: Male

DRUGS (2)
  1. SODIUM POLYSTYRENE SULFONATE [Suspect]
     Indication: HEPATITIS
     Dosage: 15 GM BID
     Dates: start: 20100901, end: 20100101
  2. LACTULOSE SOLN [Suspect]
     Dosage: 10G/15ML

REACTIONS (1)
  - DRUG DISPENSING ERROR [None]
